FAERS Safety Report 16695117 (Version 1)
Quarter: 2019Q3

REPORT INFORMATION
  Report Type: Other
  Country: IN (occurrence: IN)
  Receive Date: 20190813
  Receipt Date: 20190813
  Transmission Date: 20191004
  Serious: Yes (Hospitalization)
  Sender: FDA-Public Use
  Company Number: IN-DEXPHARM-20190592

PATIENT
  Age: 52 Year
  Sex: Female

DRUGS (1)
  1. DICLOFENAC 50 MG [Suspect]
     Active Substance: DICLOFENAC
     Indication: ARTHRALGIA
     Dosage: TWO TABLETS

REACTIONS (1)
  - Delirium [Recovered/Resolved]
